FAERS Safety Report 25197433 (Version 2)
Quarter: 2025Q2

REPORT INFORMATION
  Report Type: Spontaneous
  Country: US (occurrence: US)
  Receive Date: 20250415
  Receipt Date: 20250423
  Transmission Date: 20250717
  Serious: No
  Sender: BAXTER
  Company Number: US-BAXTER-2025BAX014024

PATIENT
  Age: 25 Year
  Sex: Female
  Weight: 98.2 kg

DRUGS (4)
  1. LACTATED RINGERS SOLUTION [Suspect]
     Active Substance: CALCIUM CHLORIDE\POTASSIUM CHLORIDE\SODIUM CHLORIDE\SODIUM LACTATE
     Indication: Supportive care
     Route: 042
  2. LACTATED RINGERS SOLUTION [Suspect]
     Active Substance: CALCIUM CHLORIDE\POTASSIUM CHLORIDE\SODIUM CHLORIDE\SODIUM LACTATE
     Indication: Haemorrhage
  3. PITOCIN [Suspect]
     Active Substance: OXYTOCIN
     Indication: Supportive care
     Route: 042
     Dates: start: 20250408
  4. PITOCIN [Suspect]
     Active Substance: OXYTOCIN
     Indication: Haemorrhage

REACTIONS (4)
  - Haemorrhagic disorder [Unknown]
  - Device infusion issue [Unknown]
  - Incorrect drug administration rate [Unknown]
  - Procedural haemorrhage [Unknown]

NARRATIVE: CASE EVENT DATE: 20250408
